FAERS Safety Report 17694848 (Version 5)
Quarter: 2020Q3

REPORT INFORMATION
  Report Type: Report from Study
  Country: NL (occurrence: NL)
  Receive Date: 20200422
  Receipt Date: 20200714
  Transmission Date: 20201102
  Serious: Yes (Hospitalization)
  Sender: FDA-Public Use
  Company Number: NL-CELGENEUS-NLD-20200406420

PATIENT
  Age: 57 Year
  Sex: Male

DRUGS (13)
  1. RITUXIMAB. [Suspect]
     Active Substance: RITUXIMAB
     Indication: B-CELL LYMPHOMA
     Dosage: CYCLE 1 ? CYCLE 6
     Route: 041
     Dates: start: 20181227, end: 20190516
  2. RITUXIMAB. [Suspect]
     Active Substance: RITUXIMAB
     Dosage: 800 MILLIGRAM?MAINTENANCE CYCLE 2
     Route: 041
     Dates: start: 20191202, end: 20191202
  3. IOVERSOL [Concomitant]
     Active Substance: IOVERSOL
     Indication: PRODUCT USED FOR UNKNOWN INDICATION
     Dosage: 60 MILLILITER
     Route: 041
     Dates: start: 20200426, end: 20200426
  4. LENALIDOMIDE [Suspect]
     Active Substance: LENALIDOMIDE
     Indication: OFF LABEL USE
     Route: 048
     Dates: start: 20190516, end: 20200508
  5. RITUXIMAB. [Suspect]
     Active Substance: RITUXIMAB
     Dosage: 800 MILLIGRAM?MAINTENANCE CYCLE 3
     Route: 041
     Dates: start: 20200224, end: 20200224
  6. SODIUM CHLORIDE. [Concomitant]
     Active Substance: SODIUM CHLORIDE
     Indication: PRODUCT USED FOR UNKNOWN INDICATION
     Route: 065
     Dates: start: 20200415, end: 20200417
  7. CIPROFLOXACIN. [Concomitant]
     Active Substance: CIPROFLOXACIN
     Indication: PRODUCT USED FOR UNKNOWN INDICATION
     Dosage: 1500 MILLIGRAM
     Route: 048
     Dates: start: 20200423, end: 20200430
  8. SALBUTAMOL [Concomitant]
     Active Substance: ALBUTEROL
     Indication: PRODUCT USED FOR UNKNOWN INDICATION
     Dosage: 4 DOSAGE FORMS
     Route: 055
     Dates: start: 20200515
  9. RITUXIMAB. [Suspect]
     Active Substance: RITUXIMAB
     Dosage: 800 MILLIGRAM?MAINTENANCE CYCLE 1
     Route: 041
     Dates: start: 20190816, end: 20190816
  10. LENALIDOMIDE [Suspect]
     Active Substance: LENALIDOMIDE
     Route: 048
     Dates: start: 20200605
  11. AMOXICILLIN. [Concomitant]
     Active Substance: AMOXICILLIN
     Indication: PRODUCT USED FOR UNKNOWN INDICATION
     Dosage: 2250 MILLIGRAM
     Route: 048
     Dates: start: 20200415, end: 20200418
  12. LENALIDOMIDE [Suspect]
     Active Substance: LENALIDOMIDE
     Indication: B-CELL LYMPHOMA
     Route: 048
     Dates: start: 20181227
  13. AMOXICILLIN/CLAVULANIC ACID [Concomitant]
     Active Substance: AMOXICILLIN\CLAVULANIC ACID
     Indication: PRODUCT USED FOR UNKNOWN INDICATION
     Dosage: 500/125 MG
     Route: 048
     Dates: start: 20200418, end: 20200418

REACTIONS (1)
  - COVID-19 pneumonia [Recovering/Resolving]

NARRATIVE: CASE EVENT DATE: 20200229
